FAERS Safety Report 12193283 (Version 1)
Quarter: 2016Q1

REPORT INFORMATION
  Report Type: Spontaneous
  Country: US (occurrence: US)
  Receive Date: 20160319
  Receipt Date: 20160319
  Transmission Date: 20160526
  Serious: No
  Sender: FDA-Public Use
  Company Number: US-B.I. PHARMACEUTICALS,INC./RIDGEFIELD-2016-BI-12786BP

PATIENT
  Sex: Male
  Weight: 90 kg

DRUGS (4)
  1. JENTADUETO [Suspect]
     Active Substance: LINAGLIPTIN\METFORMIN HYDROCHLORIDE
     Dosage: DOSE PER APPLICATION: 2.5 MG / 850 MG
     Route: 048
  2. JENTADUETO [Suspect]
     Active Substance: LINAGLIPTIN\METFORMIN HYDROCHLORIDE
     Dosage: DOSE PER APPLICATION: 2.5 MG / 500 MG
     Route: 048
  3. JENTADUETO [Suspect]
     Active Substance: LINAGLIPTIN\METFORMIN HYDROCHLORIDE
     Indication: DIABETES MELLITUS
     Dosage: DOSE PER APPLICATION: 2.5 MG / 1000 MG
     Route: 048
     Dates: start: 2012
  4. JENTADUETO [Suspect]
     Active Substance: LINAGLIPTIN\METFORMIN HYDROCHLORIDE
     Dosage: DOSE PER APPLICATION: 2.5 MG / 1000 MG
     Route: 048

REACTIONS (3)
  - Insomnia [Unknown]
  - Energy increased [Unknown]
  - Micturition disorder [Unknown]
